FAERS Safety Report 18137983 (Version 5)
Quarter: 2020Q3

REPORT INFORMATION
  Report Type: Spontaneous
  Country: CO (occurrence: CO)
  Receive Date: 20200812
  Receipt Date: 20200831
  Transmission Date: 20201103
  Serious: Yes (Death, Hospitalization, Other)
  Sender: FDA-Public Use
  Company Number: CO-GILEAD-2020-0489644

PATIENT
  Age: 49 Year
  Sex: Male

DRUGS (4)
  1. CARVEDILOL. [Concomitant]
     Active Substance: CARVEDILOL
     Indication: PRODUCT USED FOR UNKNOWN INDICATION
     Dosage: 6.25 MG
  2. SILDENAFIL. [Concomitant]
     Active Substance: SILDENAFIL
     Indication: PRODUCT USED FOR UNKNOWN INDICATION
     Dosage: 25 MG
  3. AMBRISENTAN [Suspect]
     Active Substance: AMBRISENTAN
     Indication: PULMONARY ARTERIAL HYPERTENSION
     Dosage: 10 MG, QD
     Route: 048
  4. FUROSEMIDE. [Concomitant]
     Active Substance: FUROSEMIDE
     Indication: PRODUCT USED FOR UNKNOWN INDICATION
     Dosage: 40 MG

REACTIONS (15)
  - Cardio-respiratory arrest [Fatal]
  - Respiratory arrest [Fatal]
  - Bacterial infection [Unknown]
  - Eye inflammation [Unknown]
  - Traumatic haemothorax [Not Recovered/Not Resolved]
  - Pneumonia [Unknown]
  - Disorientation [Unknown]
  - Oedema peripheral [Unknown]
  - Inflammation [Unknown]
  - Syncope [Unknown]
  - Therapy non-responder [Unknown]
  - Dyspnoea [Unknown]
  - Hand fracture [Unknown]
  - Fall [Unknown]
  - Generalised oedema [Unknown]

NARRATIVE: CASE EVENT DATE: 20200803
